FAERS Safety Report 5696593-7 (Version None)
Quarter: 2008Q2

REPORT INFORMATION
  Report Type: 
  Country: None (occurrence: None)
  Receive Date: 20080404
  Receipt Date: 20080404
  Transmission Date: 20081010
  Serious: Yes (Life-Threatening, Other)
  Sender: FDA-Public Use
  Company Number: None

PATIENT
  Age: 7 Year
  Sex: Female
  Weight: 22.6799 kg

DRUGS (2)
  1. SINGULAIR [Suspect]
     Indication: ASTHMA PROPHYLAXIS
     Dosage: ONE 5 MG CHEWABLE TABLET ONCE A DAY -NIGHT- PO
     Route: 048
     Dates: start: 20080227, end: 20080326
  2. CLARITIN [Concomitant]

REACTIONS (10)
  - ANXIETY [None]
  - CRYING [None]
  - DEPRESSION [None]
  - FEAR [None]
  - MIDDLE INSOMNIA [None]
  - OBSESSIVE THOUGHTS [None]
  - OBSESSIVE-COMPULSIVE DISORDER [None]
  - PARANOIA [None]
  - SELF ESTEEM DECREASED [None]
  - THINKING ABNORMAL [None]
